FAERS Safety Report 26036874 (Version 1)
Quarter: 2025Q4

REPORT INFORMATION
  Report Type: Spontaneous
  Country: US (occurrence: US)
  Receive Date: 20251112
  Receipt Date: 20251112
  Transmission Date: 20260118
  Serious: Yes (Other)
  Sender: PARATEK PHARMACEUTICALS
  Company Number: US-PARATEK PHARMACEUTICALS, INC.-2025PTK00082

PATIENT
  Age: 54 Year
  Sex: Female
  Weight: 49 kg

DRUGS (11)
  1. OMADACYCLINE [Suspect]
     Active Substance: OMADACYCLINE
     Indication: Pneumonia bacterial
     Dosage: 300 MG
     Dates: start: 20231025, end: 20241027
  2. OMADACYCLINE [Suspect]
     Active Substance: OMADACYCLINE
     Indication: Atypical mycobacterial infection
  3. OMADACYCLINE [Suspect]
     Active Substance: OMADACYCLINE
     Indication: Mycobacterium avium complex infection
  4. OMADACYCLINE [Suspect]
     Active Substance: OMADACYCLINE
     Indication: Mycobacterium abscessus infection
  5. CLOFAZIMINE [Suspect]
     Active Substance: CLOFAZIMINE
     Indication: Pneumonia bacterial
     Dosage: 100 MG
     Route: 048
     Dates: start: 20240206, end: 20240603
  6. CLOFAZIMINE [Suspect]
     Active Substance: CLOFAZIMINE
     Indication: Atypical mycobacterial infection
     Dosage: 50 MG
     Route: 048
     Dates: start: 20240604, end: 20241027
  7. CLOFAZIMINE [Suspect]
     Active Substance: CLOFAZIMINE
     Indication: Mycobacterium avium complex infection
  8. CLOFAZIMINE [Suspect]
     Active Substance: CLOFAZIMINE
     Indication: Mycobacterium abscessus infection
  9. AZITHROMYCIN [Concomitant]
     Active Substance: AZITHROMYCIN
     Dosage: 250 MG
     Dates: start: 20240506, end: 20240922
  10. RIFAMPIN [Concomitant]
     Active Substance: RIFAMPIN
     Dosage: 450 MG
     Dates: start: 20240506, end: 20240922
  11. ETHAMBUTOL [Concomitant]
     Active Substance: ETHAMBUTOL HYDROCHLORIDE
     Dosage: 400 MG
     Dates: start: 20240506, end: 20240922

REACTIONS (4)
  - Aspartate aminotransferase increased [Recovering/Resolving]
  - Alanine aminotransferase increased [Recovering/Resolving]
  - Blood urea decreased [Unknown]
  - Off label use [Recovered/Resolved]

NARRATIVE: CASE EVENT DATE: 20231025
